FAERS Safety Report 4455694-1 (Version None)
Quarter: 2004Q3

REPORT INFORMATION
  Report Type: 
  Country: None (occurrence: None)
  Receive Date: 20040917
  Receipt Date: 20040909
  Transmission Date: 20050211
  Serious: Yes (Hospitalization)
  Sender: FDA-Public Use
  Company Number: 2004233198DK

PATIENT
  Age: 40 Year
  Sex: Female

DRUGS (2)
  1. SULFASALAZINE [Suspect]
     Dosage: 1000 MG, BID, ORAL
     Route: 048
     Dates: start: 20040715, end: 20040810
  2. IBUPROFEN [Concomitant]

REACTIONS (5)
  - BLISTER [None]
  - COLLAGEN DISORDER [None]
  - ERYTHEMA [None]
  - LIVER DISORDER [None]
  - PRURITUS [None]
